FAERS Safety Report 12943398 (Version 8)
Quarter: 2021Q2

REPORT INFORMATION
  Report Type: Spontaneous
  Country: US (occurrence: US)
  Receive Date: 20161115
  Receipt Date: 20210527
  Transmission Date: 20210716
  Serious: Yes (Hospitalization, Other)
  Sender: FDA-Public Use
  Company Number: US-PFIZER INC-2016526407

PATIENT
  Age: 60 Year
  Sex: Male
  Weight: 113.4 kg

DRUGS (17)
  1. SOMAVERT [Suspect]
     Active Substance: PEGVISOMANT
     Dosage: 30 MG,DAILY (7 DAYS A WEEK)
  2. SOMAVERT [Suspect]
     Active Substance: PEGVISOMANT
     Dosage: 30 MG, 1X/DAY (ROTATES SITES TO THIGHS, BELLY AND ARMS)
     Dates: start: 201612, end: 20170628
  3. SOMATULINE [Suspect]
     Active Substance: LANREOTIDE ACETATE
     Dosage: 90 MG, EVERY 28 DAYS
  4. SOMAVERT [Suspect]
     Active Substance: PEGVISOMANT
     Dosage: 30 MG, DAILY
     Route: 058
     Dates: start: 20181209
  5. AXIRON [Concomitant]
     Active Substance: TESTOSTERONE
     Indication: ANDROGEN DEFICIENCY
     Dosage: 30 MG, UNK
     Route: 061
  6. SYNTHROID [Concomitant]
     Active Substance: LEVOTHYROXINE SODIUM
     Indication: THYROID DISORDER
     Dosage: 100 UG, UNK
  7. SOMAVERT [Suspect]
     Active Substance: PEGVISOMANT
     Dosage: UNK
     Dates: start: 201401, end: 20151009
  8. SOMATULINE [Suspect]
     Active Substance: LANREOTIDE ACETATE
     Dosage: 90 MG, EVERY 28 DAYS
     Dates: start: 201708
  9. SOMATULINE [Suspect]
     Active Substance: LANREOTIDE ACETATE
     Dosage: UNK (90MG/.3ML)
  10. VERAPAMIL [Concomitant]
     Active Substance: VERAPAMIL HYDROCHLORIDE
     Dosage: 180 MG, UNK
  11. MAGNESIUM [Concomitant]
     Active Substance: MAGNESIUM
     Indication: HEADACHE
     Dosage: 400 MG, DAILY
  12. SOMAVERT [Suspect]
     Active Substance: PEGVISOMANT
     Dosage: 25 MG, UNK
     Dates: start: 2013, end: 201607
  13. SOMAVERT [Suspect]
     Active Substance: PEGVISOMANT
     Dosage: 30 MG, UNK
     Dates: start: 20161108
  14. SOMAVERT [Suspect]
     Active Substance: PEGVISOMANT
     Dosage: 30 MG, 1X/DAY (ROTATES SITES TO THIGHS, BELLY AND ARMS)
  15. SOMAVERT [Suspect]
     Active Substance: PEGVISOMANT
     Dosage: 25 MG, DAILY
     Dates: start: 20161201, end: 20181209
  16. SOMAVERT [Suspect]
     Active Substance: PEGVISOMANT
     Dosage: 30 MG, EVERY OTHER DAY
     Dates: start: 20140317
  17. SOMATULINE [Suspect]
     Active Substance: LANREOTIDE ACETATE
     Indication: ACROMEGALY
     Dosage: UNK
     Dates: end: 201607

REACTIONS (6)
  - Pituitary tumour [Not Recovered/Not Resolved]
  - Product dose omission issue [Unknown]
  - Headache [Not Recovered/Not Resolved]
  - Off label use [Unknown]
  - Injection site bruising [Unknown]
  - Therapeutic product effect incomplete [Not Recovered/Not Resolved]

NARRATIVE: CASE EVENT DATE: 20160727
